FAERS Safety Report 6574826-2 (Version None)
Quarter: 2010Q1

REPORT INFORMATION
  Report Type: 
  Country: None (occurrence: None)
  Receive Date: 20100209
  Receipt Date: 20100202
  Transmission Date: 20100710
  Serious: Yes (Death, Other)
  Sender: FDA-Public Use
  Company Number: PHHY2009JP55654

PATIENT
  Sex: Male
  Weight: 70 kg

DRUGS (4)
  1. DIOVAN [Suspect]
     Indication: HYPERTENSION
     Dosage: 40 MG, QD
     Route: 048
     Dates: start: 20081031, end: 20091106
  2. SIMVASTATIN [Concomitant]
     Dosage: 5 MG, UNK
     Route: 048
     Dates: start: 20081031, end: 20090110
  3. NOVORAPID [Concomitant]
     Dosage: 5 IU, UNK
     Route: 058
     Dates: start: 20090202, end: 20091108
  4. LANTUS [Concomitant]
     Dosage: 5 IU, UNK
     Route: 058
     Dates: start: 20090105, end: 20091106

REACTIONS (2)
  - COMPLETED SUICIDE [None]
  - HEART RATE INCREASED [None]
